FAERS Safety Report 6416172-3 (Version None)
Quarter: 2009Q4

REPORT INFORMATION
  Report Type: 
  Country: None (occurrence: None)
  Receive Date: 20091027
  Receipt Date: 20091015
  Transmission Date: 20100525
  Serious: Yes (Hospitalization, Other)
  Sender: FDA-Public Use
  Company Number: US-ELI_LILLY_AND_COMPANY-US200907005456

PATIENT
  Sex: Female
  Weight: 106.58 kg

DRUGS (10)
  1. BYETTA [Suspect]
     Indication: TYPE 2 DIABETES MELLITUS
     Dosage: 5 UG, 2/D
     Route: 058
     Dates: start: 20080101, end: 20080701
  2. BYETTA [Suspect]
     Dosage: 10 UG, 2/D
     Route: 058
     Dates: start: 20080701, end: 20080801
  3. GLIPIZIDE [Concomitant]
     Indication: TYPE 2 DIABETES MELLITUS
     Dosage: 5 MG, EACH MORNING
     Route: 048
     Dates: start: 20070101
  4. PLAVIX [Concomitant]
     Dosage: UNK, 3/D
     Dates: start: 20080101
  5. LIPITOR [Concomitant]
     Indication: CORONARY ARTERY DISEASE
     Dosage: 80 MG, DAILY (1/D)
     Route: 048
     Dates: start: 20080101
  6. INSULIN [Concomitant]
     Dates: start: 20080101
  7. ASPIRIN [Concomitant]
     Indication: CORONARY ARTERY DISEASE
     Dosage: UNK, 3/D
     Dates: start: 20070101
  8. DIOVAN [Concomitant]
     Indication: CORONARY ARTERY DISEASE
     Dosage: 160 MG, DAILY (1/D)
     Route: 048
     Dates: start: 20080101, end: 20080101
  9. DIOVAN [Concomitant]
     Dosage: 80 MG, DAILY (1/D)
     Route: 048
     Dates: start: 20080820
  10. NEXIUM [Concomitant]
     Dosage: 20 MG, EACH MORNING
     Route: 048

REACTIONS (7)
  - ADRENAL DISORDER [None]
  - ATELECTASIS [None]
  - PERICARDIAL EFFUSION [None]
  - PLEURAL EFFUSION [None]
  - PNEUMONIA [None]
  - RENAL FAILURE CHRONIC [None]
  - WEIGHT DECREASED [None]
